FAERS Safety Report 19666799 (Version 4)
Quarter: 2021Q4

REPORT INFORMATION
  Report Type: Report from Study
  Country: US (occurrence: US)
  Receive Date: 20210806
  Receipt Date: 20211111
  Transmission Date: 20220304
  Serious: Yes (Other)
  Sender: FDA-Public Use
  Company Number: US-ABBVIE-21K-163-3879491-00

PATIENT
  Sex: Female

DRUGS (4)
  1. HUMIRA [Suspect]
     Active Substance: ADALIMUMAB
     Indication: Crohn^s disease
     Dosage: DAY 1
     Route: 058
     Dates: start: 20210422, end: 20210422
  2. HUMIRA [Suspect]
     Active Substance: ADALIMUMAB
     Indication: Crohn^s disease
     Route: 058
     Dates: start: 202105, end: 2021
  3. HUMIRA [Suspect]
     Active Substance: ADALIMUMAB
     Route: 058
     Dates: start: 20210422
  4. BENADRYL [Concomitant]
     Active Substance: DIPHENHYDRAMINE HYDROCHLORIDE
     Indication: Product used for unknown indication

REACTIONS (57)
  - Small intestinal obstruction [Unknown]
  - Loss of personal independence in daily activities [Unknown]
  - Fear of disease [Unknown]
  - Gastric disorder [Unknown]
  - Dizziness [Unknown]
  - Dizziness [Recovered/Resolved]
  - Gastrointestinal sounds abnormal [Recovered/Resolved]
  - Fear of injection [Unknown]
  - Wrong technique in product usage process [Unknown]
  - Frequent bowel movements [Recovering/Resolving]
  - Joint injury [Unknown]
  - Accident [Unknown]
  - Depressed mood [Unknown]
  - Crying [Unknown]
  - Stress [Unknown]
  - Insomnia [Unknown]
  - Abdominal distension [Unknown]
  - Increased tendency to bruise [Unknown]
  - Contusion [Unknown]
  - Wound [Unknown]
  - Fall [Unknown]
  - Injection site pruritus [Unknown]
  - Injection site urticaria [Unknown]
  - Injection site haemorrhage [Unknown]
  - Nausea [Recovered/Resolved]
  - Back pain [Unknown]
  - Neck pain [Unknown]
  - Arthralgia [Recovering/Resolving]
  - Vomiting [Recovered/Resolved]
  - Crohn^s disease [Unknown]
  - Injection site pain [Unknown]
  - Injection site swelling [Unknown]
  - Injection site bruising [Unknown]
  - Pain in extremity [Unknown]
  - Urticaria [Unknown]
  - Pain [Recovered/Resolved]
  - Pain [Unknown]
  - Feeling abnormal [Not Recovered/Not Resolved]
  - Unevaluable event [Not Recovered/Not Resolved]
  - Acne [Not Recovered/Not Resolved]
  - Alopecia [Not Recovered/Not Resolved]
  - Hyperhidrosis [Unknown]
  - Chills [Unknown]
  - Infection [Unknown]
  - Nasopharyngitis [Recovered/Resolved]
  - Insomnia [Unknown]
  - Anxiety [Unknown]
  - Depressed mood [Unknown]
  - Fear [Unknown]
  - Flatulence [Unknown]
  - Abdominal pain [Unknown]
  - Fatigue [Unknown]
  - Asthenia [Unknown]
  - Nausea [Unknown]
  - Vomiting [Unknown]
  - Mucous stools [Unknown]
  - Gastrointestinal sounds abnormal [Unknown]

NARRATIVE: CASE EVENT DATE: 20210101
